FAERS Safety Report 8428232 (Version 3)
Quarter: 2013Q4

REPORT INFORMATION
  Report Type: Report from Study
  Country: TR (occurrence: TR)
  Receive Date: 20120227
  Receipt Date: 20131205
  Transmission Date: 20140711
  Serious: Yes (Death, Hospitalization, Other)
  Sender: FDA-Public Use
  Company Number: TR-ASTELLAS-2012US002136

PATIENT
  Age: 58 Year
  Sex: Male
  Weight: 81 kg

DRUGS (10)
  1. BLINDED ERLOTINIB TABLET [Suspect]
     Indication: NON-SMALL CELL LUNG CANCER
     Dosage: UNK
     Route: 048
     Dates: start: 20120217, end: 20130217
  2. RANITIDINE [Concomitant]
     Indication: PRODUCT USED FOR UNKNOWN INDICATION
     Dosage: 2 ML, UID/QD
     Route: 065
     Dates: start: 20120212, end: 20120219
  3. MOXIFLOXACIN [Concomitant]
     Indication: PRODUCT USED FOR UNKNOWN INDICATION
     Dosage: 400 MG, UID/QD
     Route: 065
     Dates: start: 20120212, end: 20120219
  4. IPRATROPIUM BROMIDE MONOHYDRATE [Concomitant]
     Indication: PRODUCT USED FOR UNKNOWN INDICATION
     Dosage: 4 FL, UID/QD
     Route: 065
     Dates: start: 20120212, end: 20120219
  5. DICLOFENAC SODIUM [Concomitant]
     Indication: PRODUCT USED FOR UNKNOWN INDICATION
     Dosage: 75 MG, UID/QD
     Route: 065
     Dates: start: 20120212, end: 20120219
  6. PARACETAMOL [Concomitant]
     Indication: PRODUCT USED FOR UNKNOWN INDICATION
     Dosage: 20 MG/ML, UID/QD
     Route: 065
     Dates: start: 20120213, end: 20120219
  7. ENOXAPARIN SODIUM [Concomitant]
     Indication: PRODUCT USED FOR UNKNOWN INDICATION
     Dosage: 1.6 ML, UID/QD
     Route: 065
     Dates: start: 20120214, end: 20120219
  8. SALBUTAMOL SULFATE [Concomitant]
     Indication: PRODUCT USED FOR UNKNOWN INDICATION
     Dosage: UNK
     Route: 065
     Dates: start: 20120212, end: 20120219
  9. DIONIN [Concomitant]
     Indication: PRODUCT USED FOR UNKNOWN INDICATION
     Dosage: 2 DF, UID/QD
     Route: 065
     Dates: start: 20120215, end: 20120219
  10. CODEINE [Concomitant]
     Indication: PRODUCT USED FOR UNKNOWN INDICATION
     Dosage: 2 DF, UID/QD
     Route: 065
     Dates: start: 20120215, end: 20120219

REACTIONS (3)
  - Hepatic failure [Fatal]
  - Renal failure [Unknown]
  - Respiratory failure [Recovering/Resolving]
